FAERS Safety Report 16300237 (Version 1)
Quarter: 2019Q2

REPORT INFORMATION
  Report Type: Spontaneous
  Country: US (occurrence: US)
  Receive Date: 20190510
  Receipt Date: 20190510
  Transmission Date: 20190711
  Serious: Yes (Life-Threatening, Other)
  Sender: FDA-Public Use
  Company Number: US-DRREDDYS-USA/USA/19/0110067

PATIENT
  Age: 29 Year
  Sex: Male

DRUGS (1)
  1. DIVALPROEX SODIUM DR [Suspect]
     Active Substance: DIVALPROEX SODIUM
     Indication: PRODUCT USED FOR UNKNOWN INDICATION
     Dosage: 1 TAB PO QAM, 2 TABS PO QPM
     Route: 048

REACTIONS (4)
  - Injury [Unknown]
  - Product quality issue [Unknown]
  - Choking [Unknown]
  - Accidental exposure to product packaging [Unknown]

NARRATIVE: CASE EVENT DATE: 20180414
